FAERS Safety Report 19160578 (Version 1)
Quarter: 2021Q2

REPORT INFORMATION
  Report Type: Spontaneous
  Country: US (occurrence: US)
  Receive Date: 20210420
  Receipt Date: 20210420
  Transmission Date: 20210717
  Serious: No
  Sender: FDA-Public Use
  Company Number: US-ASTRAZENECA-2021A285467

PATIENT
  Age: 82 Year
  Sex: Male

DRUGS (1)
  1. BRILINTA [Suspect]
     Active Substance: TICAGRELOR
     Route: 048
     Dates: start: 20210401

REACTIONS (6)
  - Ocular discomfort [Unknown]
  - Dizziness [Unknown]
  - Feeling hot [Unknown]
  - Rash erythematous [Unknown]
  - Flushing [Unknown]
  - Head discomfort [Unknown]
